FAERS Safety Report 13752123 (Version 3)
Quarter: 2017Q3

REPORT INFORMATION
  Report Type: Spontaneous
  Country: FR (occurrence: FR)
  Receive Date: 20170713
  Receipt Date: 20170928
  Transmission Date: 20171127
  Serious: Yes (Hospitalization, Other)
  Sender: FDA-Public Use
  Company Number: FR-REGENERON PHARMACEUTICALS, INC.-2017-18612

PATIENT

DRUGS (2)
  1. EYLEA [Suspect]
     Active Substance: AFLIBERCEPT
     Dosage: 1 DF, UNK
     Route: 031
     Dates: start: 20170614
  2. EYLEA [Suspect]
     Active Substance: AFLIBERCEPT
     Indication: NEOVASCULAR AGE-RELATED MACULAR DEGENERATION
     Dosage: 1 DF, TOTAL 8 DOSES OF EYLEA PRIOR THE EVENT
     Route: 031
     Dates: start: 201601

REACTIONS (4)
  - Cerebral vasoconstriction [Recovering/Resolving]
  - Cognitive disorder [Unknown]
  - Reversible cerebral vasoconstriction syndrome [Recovering/Resolving]
  - Hypertension [Unknown]

NARRATIVE: CASE EVENT DATE: 20170614
